FAERS Safety Report 10278146 (Version 1)
Quarter: 2014Q3

REPORT INFORMATION
  Report Type: Report from Study
  Country: CZ (occurrence: CZ)
  Receive Date: 20140704
  Receipt Date: 20140704
  Transmission Date: 20150326
  Serious: Yes (Hospitalization, Disabling)
  Sender: FDA-Public Use
  Company Number: PHHY2014CZ080629

PATIENT
  Age: 71 Year
  Sex: Female

DRUGS (9)
  1. PREDNISON [Concomitant]
     Active Substance: PREDNISONE
  2. ANOPYRIN [Concomitant]
     Active Substance: ASPIRIN
  3. HELICID [Concomitant]
  4. RAMIPRIL. [Concomitant]
     Active Substance: RAMIPRIL
  5. FRAXIPARIN [Concomitant]
     Active Substance: NADROPARIN CALCIUM
  6. TEGRETOL [Concomitant]
     Active Substance: CARBAMAZEPINE
  7. AFINITOR [Suspect]
     Active Substance: EVEROLIMUS
     Indication: METASTATIC RENAL CELL CARCINOMA
     Dosage: 10 MG, QD
  8. FURON [Concomitant]
  9. BISOPROLOL [Concomitant]
     Active Substance: BISOPROLOL

REACTIONS (2)
  - Lower limb fracture [Unknown]
  - Pneumonitis [Recovered/Resolved]

NARRATIVE: CASE EVENT DATE: 20140605
